FAERS Safety Report 10235121 (Version 1)
Quarter: 2014Q2

REPORT INFORMATION
  Report Type: Report from Study
  Country: ES (occurrence: ES)
  Receive Date: 20140613
  Receipt Date: 20140613
  Transmission Date: 20141212
  Serious: Yes (Other)
  Sender: FDA-Public Use
  Company Number: ES-BAYER-2014-081912

PATIENT
  Age: 86 Year
  Sex: Female

DRUGS (1)
  1. ADIRO 100 [Suspect]
     Indication: ANGINA PECTORIS
     Dosage: 100 MG, QD, 0-1-0
     Route: 048
     Dates: start: 2014

REACTIONS (1)
  - Haemoglobin decreased [Recovering/Resolving]
